FAERS Safety Report 6902879-8 (Version None)
Quarter: 2010Q3

REPORT INFORMATION
  Report Type: 
  Country: None (occurrence: None)
  Receive Date: 20100803
  Receipt Date: 20080730
  Transmission Date: 20110219
  Serious: No
  Sender: FDA-Public Use
  Company Number: US-PFIZER INC-2008063751

PATIENT
  Age: 90 Year

DRUGS (1)
  1. LYRICA [Suspect]

REACTIONS (1)
  - DIZZINESS [None]
